FAERS Safety Report 25503814 (Version 1)
Quarter: 2025Q3

REPORT INFORMATION
  Report Type: Spontaneous
  Country: EU (occurrence: EU)
  Receive Date: 20250702
  Receipt Date: 20250702
  Transmission Date: 20251020
  Serious: Yes (Other)
  Sender: MYLAN
  Company Number: None

PATIENT
  Age: 68 Year
  Sex: Male

DRUGS (8)
  1. FENTANYL [Suspect]
     Active Substance: FENTANYL
     Indication: Product used for unknown indication
  2. FENTANYL [Suspect]
     Active Substance: FENTANYL
     Route: 065
  3. FENTANYL [Suspect]
     Active Substance: FENTANYL
     Route: 065
  4. FENTANYL [Suspect]
     Active Substance: FENTANYL
  5. ACTIQ [Suspect]
     Active Substance: FENTANYL CITRATE
     Indication: Product used for unknown indication
  6. ACTIQ [Suspect]
     Active Substance: FENTANYL CITRATE
     Route: 065
  7. ACTIQ [Suspect]
     Active Substance: FENTANYL CITRATE
     Route: 065
  8. ACTIQ [Suspect]
     Active Substance: FENTANYL CITRATE

REACTIONS (2)
  - Drug use disorder [Not Recovered/Not Resolved]
  - Drug dependence [Not Recovered/Not Resolved]
